FAERS Safety Report 22020701 (Version 1)
Quarter: 2023Q1

REPORT INFORMATION
  Report Type: Spontaneous
  Country: IR (occurrence: IR)
  Receive Date: 20230222
  Receipt Date: 20230222
  Transmission Date: 20230418
  Serious: Yes (Other)
  Sender: FDA-Public Use
  Company Number: IR-GLAXOSMITHKLINE-IR2023GSK026180

PATIENT

DRUGS (1)
  1. BUPROPION [Suspect]
     Active Substance: BUPROPION
     Indication: Depression
     Dosage: 150 MG, QD

REACTIONS (5)
  - Peptic ulcer [Recovering/Resolving]
  - Abdominal pain [Recovered/Resolved]
  - Gastrointestinal haemorrhage [Recovering/Resolving]
  - Abdominal pain upper [Recovered/Resolved]
  - Gastric ulcer [Recovering/Resolving]
